FAERS Safety Report 15770389 (Version 1)
Quarter: 2018Q4

REPORT INFORMATION
  Report Type: Spontaneous
  Country: US (occurrence: US)
  Receive Date: 20181207
  Receipt Date: 20181207
  Transmission Date: 20190205
  Serious: No
  Sender: FDA-Public Use
  Company Number: None

PATIENT
  Age: 50 Year
  Sex: Male

DRUGS (1)
  1. STELARA [Suspect]
     Active Substance: USTEKINUMAB
     Indication: PSORIASIS
     Dosage: ?          OTHER FREQUENCY:UNKNOWN;?
     Route: 058
     Dates: start: 20151206

REACTIONS (2)
  - Economic problem [None]
  - Therapy cessation [None]

NARRATIVE: CASE EVENT DATE: 20181206
